FAERS Safety Report 22900720 (Version 3)
Quarter: 2024Q2

REPORT INFORMATION
  Report Type: Spontaneous
  Country: US (occurrence: US)
  Receive Date: 20230904
  Receipt Date: 20240418
  Transmission Date: 20240715
  Serious: Yes (Hospitalization)
  Sender: FDA-Public Use
  Company Number: US-BRISTOL-MYERS SQUIBB COMPANY-2023-123080

PATIENT
  Age: 81 Year
  Sex: Female

DRUGS (1)
  1. POMALYST [Suspect]
     Active Substance: POMALIDOMIDE
     Indication: Plasma cell myeloma
     Dosage: DAILY FOR 21 DAYS ON, THEN 7 DAYS OFF
     Route: 048

REACTIONS (4)
  - Abdominal pain upper [Recovering/Resolving]
  - Diarrhoea [Unknown]
  - Product dose omission issue [Unknown]
  - Memory impairment [Unknown]

NARRATIVE: CASE EVENT DATE: 20230826
